FAERS Safety Report 4521855-6 (Version None)
Quarter: 2004Q4

REPORT INFORMATION
  Report Type: 
  Country: None (occurrence: None)
  Receive Date: 20041207
  Receipt Date: 20041124
  Transmission Date: 20050328
  Serious: Yes (Hospitalization, Other)
  Sender: FDA-Public Use
  Company Number: 2004090054

PATIENT
  Age: 66 Year
  Sex: Female
  Weight: 77.1115 kg

DRUGS (6)
  1. ZOLOFT [Suspect]
     Indication: ILL-DEFINED DISORDER
     Dosage: 25 MG (25 MG, 1 IN 1 D), ORAL
     Route: 048
     Dates: start: 20020301, end: 20040101
  2. ALL OTHER THERAPEUTIC PRODUCTS (ALL OTHER THERAPEUTIC PRODUCTS) [Suspect]
     Indication: HYPERTENSION
     Dates: end: 20040101
  3. NEURONTIN [Suspect]
     Indication: CONVULSION
     Dosage: 1200 MG (300 MG, 2 IN 2 D)
     Dates: start: 20020101
  4. ACCUPRIL [Suspect]
     Indication: HYPERTENSION
     Dosage: 80 MG (40 MG, 2 IN 1 D), ORAL
     Route: 047
     Dates: start: 20040101
  5. NORVASC [Suspect]
     Indication: HYPERTENSION
     Dosage: 10 MG (10 MG, 1 IN 1 D), ORAL
     Route: 048
     Dates: start: 20040101
  6. CLONIDINE (CLONIDIINE) [Concomitant]

REACTIONS (9)
  - AMNESIA [None]
  - CONVULSION [None]
  - CORONARY ARTERY OCCLUSION [None]
  - CRYING [None]
  - HEADACHE [None]
  - HYPERTENSION [None]
  - HYPOTENSION [None]
  - RUPTURED CEREBRAL ANEURYSM [None]
  - THERAPEUTIC RESPONSE INCREASED [None]
